FAERS Safety Report 10305636 (Version 1)
Quarter: 2014Q3

REPORT INFORMATION
  Report Type: Spontaneous
  Country: US (occurrence: None)
  Receive Date: 20140711
  Receipt Date: 20140711
  Transmission Date: 20150326
  Serious: Yes (Hospitalization)
  Sender: FDA-Public Use
  Company Number: UNT-2014-000930

PATIENT
  Age: 80 Year
  Sex: Male
  Weight: 68.9 kg

DRUGS (2)
  1. SILDENAFIL (SILDENAFIL) [Suspect]
     Active Substance: SILDENAFIL
     Indication: PULMONARY ARTERIAL HYPERTENSION
     Route: 048
  2. REMODULIN [Suspect]
     Active Substance: TREPROSTINIL
     Indication: PULMONARY ARTERIAL HYPERTENSION
     Route: 058
     Dates: start: 20140115

REACTIONS (2)
  - Pulmonary arterial hypertension [None]
  - Anaemia [None]

NARRATIVE: CASE EVENT DATE: 20140514
